FAERS Safety Report 22903895 (Version 3)
Quarter: 2023Q4

REPORT INFORMATION
  Report Type: Report from Study
  Country: DE (occurrence: DE)
  Receive Date: 20230905
  Receipt Date: 20231128
  Transmission Date: 20240109
  Serious: Yes (Death, Life-Threatening, Hospitalization, Other)
  Sender: FDA-Public Use
  Company Number: DE-JNJFOC-20230871984

PATIENT
  Age: 82 Year
  Sex: Male
  Weight: 73 kg

DRUGS (8)
  1. BORTEZOMIB [Suspect]
     Active Substance: BORTEZOMIB
     Indication: Plasma cell myeloma
     Dosage: 2.5 MILLIGRAM
     Route: 065
  2. DARATUMUMAB\HYALURONIDASE-FIHJ [Suspect]
     Active Substance: DARATUMUMAB\HYALURONIDASE-FIHJ
     Indication: Plasma cell myeloma
     Dosage: 1800 MILLIGRAM
     Route: 058
     Dates: start: 20220719
  3. MCP STADA [Concomitant]
     Indication: Product used for unknown indication
     Dosage: 10.54 MILLIGRAM
     Route: 048
     Dates: start: 20220719, end: 202301
  4. ACETAMINOPHEN [Concomitant]
     Active Substance: ACETAMINOPHEN
     Indication: Product used for unknown indication
     Dosage: 500 MILLIGRAM, 1/WEEK
     Route: 048
     Dates: start: 20220719, end: 202301
  5. MONTELUKAST [Concomitant]
     Active Substance: MONTELUKAST SODIUM
     Indication: Product used for unknown indication
     Dosage: 10.38 MILLIGRAM, 1/WEEK
     Route: 048
     Dates: start: 20220719, end: 202301
  6. COTRIMOXAZOLE [Concomitant]
     Active Substance: SULFAMETHOXAZOLE\TRIMETHOPRIM
     Indication: Product used for unknown indication
     Dosage: 960 MILLIGRAM, QOD
     Route: 048
     Dates: start: 20220720, end: 202301
  7. DEXAMETHASONE [Concomitant]
     Active Substance: DEXAMETHASONE
     Indication: Product used for unknown indication
     Dosage: 8 MILLIGRAM, 1/WEEK
     Route: 048
     Dates: start: 20220727, end: 20230117
  8. DEXAMETHASONE [Concomitant]
     Active Substance: DEXAMETHASONE
     Dosage: 20 MILLIGRAM, 1/WEEK
     Route: 048
     Dates: start: 20230117, end: 20230117

REACTIONS (5)
  - Subdural haematoma [Fatal]
  - Fall [Fatal]
  - Acute kidney injury [Unknown]
  - Cardiac arrest [Recovered/Resolved]
  - Metabolic acidosis [Unknown]

NARRATIVE: CASE EVENT DATE: 20230125
